FAERS Safety Report 17926794 (Version 1)
Quarter: 2020Q2

REPORT INFORMATION
  Report Type: Spontaneous
  Country: US (occurrence: US)
  Receive Date: 20200623
  Receipt Date: 20200623
  Transmission Date: 20200714
  Serious: No
  Sender: FDA-Public Use
  Company Number: US-ITALFARMACO SPA-2086534

PATIENT
  Age: 67 Year
  Sex: Female

DRUGS (1)
  1. TIGLUTIK [Suspect]
     Active Substance: RILUZOLE
     Indication: AMYOTROPHIC LATERAL SCLEROSIS
     Route: 048
     Dates: start: 20200310

REACTIONS (2)
  - Hypoaesthesia [Recovered/Resolved]
  - Paraesthesia oral [Recovered/Resolved]
